FAERS Safety Report 10715919 (Version 1)
Quarter: 2015Q1

REPORT INFORMATION
  Report Type: Spontaneous
  Country: US (occurrence: US)
  Receive Date: 20150116
  Receipt Date: 20150116
  Transmission Date: 20150721
  Serious: No
  Sender: FDA-Public Use
  Company Number: US-PFIZER INC-2015015317

PATIENT
  Age: 70 Year
  Sex: Female
  Weight: 63 kg

DRUGS (2)
  1. XALKORI [Suspect]
     Active Substance: CRIZOTINIB
     Dosage: 250 MG, IN THE MORNING AND AT NIGHT
     Dates: start: 201412
  2. XALKORI [Suspect]
     Active Substance: CRIZOTINIB
     Indication: LUNG CANCER METASTATIC
     Dosage: UNK
     Dates: start: 2013

REACTIONS (1)
  - Peripheral swelling [Recovering/Resolving]
